FAERS Safety Report 19043587 (Version 4)
Quarter: 2021Q3

REPORT INFORMATION
  Report Type: Report from Study
  Country: GB (occurrence: GB)
  Receive Date: 20210322
  Receipt Date: 20210923
  Transmission Date: 20211014
  Serious: Yes (Hospitalization, Other)
  Sender: FDA-Public Use
  Company Number: NVSC2021GB062563

PATIENT
  Sex: Female

DRUGS (3)
  1. DIPYRIDAMOLE. [Concomitant]
     Active Substance: DIPYRIDAMOLE
     Indication: PRODUCT USED FOR UNKNOWN INDICATION
     Dosage: 200 MG, BID
     Route: 065
  2. COSENTYX [Suspect]
     Active Substance: SECUKINUMAB
     Indication: PSORIATIC ARTHROPATHY
     Dosage: 300 MG, QMO
     Route: 058
     Dates: start: 201711
  3. ASPIRIN. [Concomitant]
     Active Substance: ASPIRIN
     Indication: PRODUCT USED FOR UNKNOWN INDICATION
     Dosage: UNK (WATER SOLUBLE)
     Route: 065

REACTIONS (8)
  - Foot fracture [Unknown]
  - Blood viscosity increased [Unknown]
  - Increased tendency to bruise [Unknown]
  - Hand fracture [Unknown]
  - Cerebrovascular accident [Unknown]
  - Fall [Unknown]
  - Contusion [Unknown]
  - Wrist fracture [Unknown]

NARRATIVE: CASE EVENT DATE: 202103
